FAERS Safety Report 5062618-5 (Version None)
Quarter: 2006Q3

REPORT INFORMATION
  Report Type: 
  Country: None (occurrence: None)
  Receive Date: 20060724
  Receipt Date: 20060718
  Transmission Date: 20061208
  Serious: Yes (Other)
  Sender: FDA-Public Use
  Company Number: FR-2006-019369

PATIENT
  Age: 32 Year
  Sex: Female

DRUGS (1)
  1. MIRENA [Suspect]
     Dosage: 20 UG/DAY, CONT, INTRA-UTERINE
     Route: 015
     Dates: start: 20050101, end: 20051001

REACTIONS (5)
  - AMNESIA [None]
  - BACK PAIN [None]
  - EPILEPSY [None]
  - FACIAL PALSY [None]
  - HEADACHE [None]
